FAERS Safety Report 8716535 (Version 4)
Quarter: 2013Q3

REPORT INFORMATION
  Report Type: Report from Study
  Country: FR (occurrence: FR)
  Receive Date: 20120810
  Receipt Date: 20130820
  Transmission Date: 20140515
  Serious: Yes (Hospitalization, Other)
  Sender: FDA-Public Use
  Company Number: FR-BIOGENIDEC-2012BI029718

PATIENT
  Age: 57 Year
  Sex: Female
  Weight: 55 kg

DRUGS (4)
  1. TYSABRI [Suspect]
     Indication: MULTIPLE SCLEROSIS
     Route: 042
     Dates: start: 20071112, end: 20090512
  2. BACLOFEN [Concomitant]
     Indication: MUSCLE SPASTICITY
     Dates: start: 2006
  3. PREGABALINE [Concomitant]
     Indication: NEURALGIA
     Dates: start: 2008
  4. CLONAZEPAM [Concomitant]
     Indication: NEURALGIA
     Dates: start: 2008

REACTIONS (1)
  - Breast cancer [Recovered/Resolved]
